FAERS Safety Report 4453971-1 (Version None)
Quarter: 2004Q3

REPORT INFORMATION
  Report Type: 
  Country: None (occurrence: None)
  Receive Date: 20040920
  Receipt Date: 20040903
  Transmission Date: 20050211
  Serious: Yes (Hospitalization)
  Sender: FDA-Public Use
  Company Number: PT-GLAXOSMITHKLINE-B0344722A

PATIENT
  Age: 38 Year
  Sex: Male

DRUGS (1)
  1. ZYBAN [Suspect]
     Route: 048
     Dates: start: 20040817, end: 20040831

REACTIONS (6)
  - ANGIONEUROTIC OEDEMA [None]
  - BRONCHOSPASM [None]
  - OEDEMA PERIPHERAL [None]
  - PYREXIA [None]
  - SKIN LESION [None]
  - URTICARIA [None]
